FAERS Safety Report 17273484 (Version 1)
Quarter: 2020Q1

REPORT INFORMATION
  Report Type: Spontaneous
  Country: US (occurrence: US)
  Receive Date: 20200115
  Receipt Date: 20200115
  Transmission Date: 20200409
  Serious: Yes (Hospitalization, Disabling)
  Sender: FDA-Public Use
  Company Number: None

PATIENT
  Age: 55 Year
  Sex: Female
  Weight: 86.4 kg

DRUGS (8)
  1. COLLAGEN [Concomitant]
     Active Substance: COLLAGEN
  2. MULTIVITAMINS [Concomitant]
     Active Substance: VITAMINS
  3. CHONDROITIN [Concomitant]
     Active Substance: CHONDROITIN
  4. HEPARIN [Suspect]
     Active Substance: HEPARIN SODIUM
     Indication: THROMBOSIS
     Dates: start: 20190202, end: 20190212
  5. ELIQUIS [Concomitant]
     Active Substance: APIXABAN
  6. GLUCOSAMINE [Concomitant]
     Active Substance: GLUCOSAMINE
  7. TYLENOL [Concomitant]
     Active Substance: ACETAMINOPHEN
  8. KETO WEIGHT LOSS PRODUCT [Concomitant]

REACTIONS (2)
  - Toe amputation [None]
  - Skin discolouration [None]

NARRATIVE: CASE EVENT DATE: 20190217
